FAERS Safety Report 20466810 (Version 1)
Quarter: 2022Q1

REPORT INFORMATION
  Report Type: Spontaneous
  Country: JP (occurrence: JP)
  Receive Date: 20220214
  Receipt Date: 20220214
  Transmission Date: 20220423
  Serious: Yes (Other)
  Sender: FDA-Public Use
  Company Number: JP-WOCKHARDT BIO AG-2022WBA000012

PATIENT
  Age: 36 Year
  Sex: Male

DRUGS (4)
  1. PREDNISOLONE [Suspect]
     Active Substance: PREDNISOLONE
     Indication: Granulomatosis with polyangiitis
     Dosage: 0.075 MG/KG
     Route: 048
  2. PREDNISOLONE [Suspect]
     Active Substance: PREDNISOLONE
     Dosage: 0.15 MG/KG
     Route: 048
  3. MIZORIBINE [Concomitant]
     Active Substance: MIZORIBINE
     Indication: Granulomatosis with polyangiitis
     Dosage: 100 MILLIGRAM
     Route: 065
  4. UNSPECIFIED INGREDIENT [Concomitant]
     Active Substance: UNSPECIFIED INGREDIENT
     Indication: Granulomatosis with polyangiitis
     Dosage: 1000 MILLIGRAM
     Route: 065

REACTIONS (1)
  - Chorioretinopathy [Recovering/Resolving]
